FAERS Safety Report 5765600-5 (Version None)
Quarter: 2008Q2

REPORT INFORMATION
  Report Type: 
  Country: None (occurrence: None)
  Receive Date: 20080606
  Receipt Date: 20080606
  Transmission Date: 20081010
  Serious: Yes (Hospitalization)
  Sender: FDA-Public Use
  Company Number: None

PATIENT
  Sex: Male
  Weight: 64.36 kg

DRUGS (2)
  1. CISPLATIN [Suspect]
     Dosage: 130 MG
     Dates: end: 20080528
  2. TAXOTERE [Suspect]
     Dosage: 130 MG
     Dates: end: 20080528

REACTIONS (3)
  - HYPOTENSION [None]
  - LEUKOCYTOSIS [None]
  - PNEUMONIA ASPIRATION [None]
